FAERS Safety Report 11309360 (Version 5)
Quarter: 2016Q3

REPORT INFORMATION
  Report Type: Report from Study
  Country: US (occurrence: US)
  Receive Date: 20150724
  Receipt Date: 20160805
  Transmission Date: 20161109
  Serious: Yes (Other)
  Sender: FDA-Public Use
  Company Number: US-ASTRAZENECA-2015SE22728

PATIENT
  Sex: Female

DRUGS (3)
  1. BENADRYL [Concomitant]
     Active Substance: DIPHENHYDRAMINE HYDROCHLORIDE
     Indication: PRURITUS
  2. LYNPARZA [Suspect]
     Active Substance: OLAPARIB
     Indication: OVARIAN CANCER
     Route: 048
     Dates: start: 20160303
  3. LYNPARZA [Suspect]
     Active Substance: OLAPARIB
     Indication: OVARIAN CANCER
     Dosage: TAKING 9 INSTEAD OF 8
     Route: 048

REACTIONS (14)
  - Nausea [Unknown]
  - Incorrect dose administered [Unknown]
  - Epistaxis [Recovered/Resolved]
  - Gingival pain [Unknown]
  - Haemoglobin decreased [Recovering/Resolving]
  - Thinking abnormal [Not Recovered/Not Resolved]
  - Regurgitation [Recovered/Resolved]
  - Decreased appetite [Unknown]
  - Pruritus [Not Recovered/Not Resolved]
  - Fatigue [Unknown]
  - Abdominal pain upper [Unknown]
  - Sneezing [Unknown]
  - Pruritus generalised [Unknown]
  - Drug dose omission [Unknown]
